FAERS Safety Report 8986277 (Version 1)
Quarter: 2012Q4

REPORT INFORMATION
  Report Type: Spontaneous
  Country: GB (occurrence: None)
  Receive Date: 20121217
  Receipt Date: 20121217
  Transmission Date: 20130627
  Serious: Yes (Other)
  Sender: FDA-Public Use
  Company Number: AUR-APL-2012-05216

PATIENT
  Age: 16 Year
  Sex: Female
  Weight: 79 kg

DRUGS (1)
  1. FLUOXETINE [Suspect]
     Indication: PERSONALITY DISORDER
     Route: 048
     Dates: start: 20121106, end: 20121115

REACTIONS (6)
  - Slow speech [None]
  - Hallucination, visual [None]
  - Tardive dyskinesia [None]
  - Nystagmus [None]
  - Unresponsive to stimuli [None]
  - Headache [None]
